FAERS Safety Report 17201058 (Version 1)
Quarter: 2019Q4

REPORT INFORMATION
  Report Type: Report from Study
  Country: DE (occurrence: DE)
  Receive Date: 20191226
  Receipt Date: 20191226
  Transmission Date: 20200122
  Serious: Yes (Hospitalization)
  Sender: FDA-Public Use
  Company Number: NVSC2019DE077222

PATIENT
  Age: 73 Year
  Sex: Female

DRUGS (3)
  1. TOLVAPTAN [Concomitant]
     Active Substance: TOLVAPTAN
     Indication: BLOOD SODIUM DECREASED
     Dosage: UNK UNK, TIW
     Route: 065
     Dates: start: 201903
  2. TOPOTECAN HYDROCHLORIDE. [Suspect]
     Active Substance: TOPOTECAN HYDROCHLORIDE
     Indication: SMALL CELL LUNG CANCER
     Dosage: 1.25 MG/M2 ON DAY 1-5 OF A 3 WEEK PERIOD
     Route: 042
     Dates: start: 20191021, end: 20191025
  3. EFFORTIL [Concomitant]
     Active Substance: ETILEFRINE HYDROCHLORIDE
     Indication: HYPOTONIA
     Dosage: UNK
     Route: 065
     Dates: start: 201904

REACTIONS (4)
  - Headache [Recovered/Resolved with Sequelae]
  - Neutropenia [Recovered/Resolved with Sequelae]
  - Syncope [Recovered/Resolved with Sequelae]
  - Dehydration [Recovered/Resolved with Sequelae]

NARRATIVE: CASE EVENT DATE: 20191028
